FAERS Safety Report 6074132-9 (Version None)
Quarter: 2009Q1

REPORT INFORMATION
  Report Type: 
  Country: None (occurrence: None)
  Receive Date: 20090211
  Receipt Date: 20090205
  Transmission Date: 20090719
  Serious: Yes (Congenital Anomaly)
  Sender: FDA-Public Use
  Company Number: B0558563A

PATIENT
  Sex: Female
  Weight: 3.3 kg

DRUGS (4)
  1. COMBIVIR [Suspect]
     Indication: ANTIVIRAL TREATMENT
     Dosage: 2TAB PER DAY
     Dates: start: 20020304
  2. RITONAVIR [Suspect]
     Indication: ANTIVIRAL TREATMENT
     Dosage: 100MG PER DAY
     Dates: start: 20071120, end: 20080325
  3. NEVIRAPINE [Suspect]
     Indication: ANTIVIRAL TREATMENT
     Dosage: 200MG PER DAY
     Dates: start: 20080326
  4. PREZISTA [Suspect]
     Indication: ANTIVIRAL TREATMENT
     Dosage: 800MG PER DAY
     Dates: start: 20071120, end: 20080325

REACTIONS (2)
  - DRUG EXPOSURE DURING PREGNANCY [None]
  - PREMATURE BABY [None]
